FAERS Safety Report 8090769-X (Version None)
Quarter: 2012Q1

REPORT INFORMATION
  Report Type: 
  Country: None (occurrence: None)
  Receive Date: 20120125
  Receipt Date: 20120111
  Transmission Date: 20120608
  Serious: Yes (Death, Other)
  Sender: FDA-Public Use
  Company Number: AUR-APL-2012-00463

PATIENT
  Age: 81 Year
  Sex: Female

DRUGS (11)
  1. METFORMIN HCL [Suspect]
     Indication: PRODUCT USED FOR UNKNOWN INDICATION
     Dosage: 2550 MG (850 MG, 3 IN 1 D), ORAL
     Route: 048
  2. FUROSEMIDE [Concomitant]
  3. CAPTOPRIL [Concomitant]
  4. GLICLAZIDE (GLICLAZIDE) [Concomitant]
  5. LANSOPRAZOLE [Concomitant]
  6. DULOXETINE HYDROCHLORIDE [Concomitant]
  7. MORPHINE SULFATE [Concomitant]
  8. SIMVASTATIN [Concomitant]
  9. ALLOPURINOL [Concomitant]
  10. LEVOTHYROXINE SODIUM [Concomitant]
  11. ACETAMINOPHEN [Concomitant]

REACTIONS (5)
  - RENAL FAILURE ACUTE [None]
  - DEHYDRATION [None]
  - CONTINUOUS HAEMODIAFILTRATION [None]
  - ABDOMINAL DISCOMFORT [None]
  - METABOLIC ACIDOSIS [None]
